FAERS Safety Report 5199907-X (Version None)
Quarter: 2007Q1

REPORT INFORMATION
  Report Type: 
  Country: None (occurrence: None)
  Receive Date: 20070103
  Receipt Date: 20061218
  Transmission Date: 20070707
  Serious: Yes (Hospitalization)
  Sender: FDA-Public Use
  Company Number: GXKR2006US08322

PATIENT
  Age: 27 Month
  Sex: Female

DRUGS (1)
  1. PARACETAMOL (NGX) (PARACETAMOL) UNKNOWN [Suspect]
     Indication: INCORRECT DOSE ADMINISTERED
     Dosage: UNK, UNK, UNK

REACTIONS (5)
  - COMA [None]
  - METABOLIC ACIDOSIS [None]
  - OVERDOSE [None]
  - SOMNOLENCE [None]
  - VOMITING [None]
